FAERS Safety Report 5282197-7 (Version None)
Quarter: 2007Q1

REPORT INFORMATION
  Report Type: 
  Country: None (occurrence: None)
  Receive Date: 20070330
  Receipt Date: 20070320
  Transmission Date: 20070707
  Serious: Yes (Other)
  Sender: FDA-Public Use
  Company Number: JP-PFIZER INC-2007017927

PATIENT
  Age: 74 Year
  Sex: Female

DRUGS (2)
  1. DIFLUCAN [Suspect]
     Indication: MENINGITIS
     Dosage: DAILY DOSE:100MG
     Route: 048
     Dates: start: 20070202, end: 20070223
  2. PREDNISOLONE [Concomitant]

REACTIONS (1)
  - BLOOD POTASSIUM INCREASED [None]
